FAERS Safety Report 17982769 (Version 1)
Quarter: 2020Q3

REPORT INFORMATION
  Report Type: Spontaneous
  Country: US (occurrence: US)
  Receive Date: 20200706
  Receipt Date: 20200706
  Transmission Date: 20201103
  Serious: No
  Sender: FDA-Public Use
  Company Number: US-GLAXOSMITHKLINE-US2020AMR118414

PATIENT
  Age: 33 Year
  Sex: Male

DRUGS (1)
  1. ZOVIRAX [Suspect]
     Active Substance: ACYCLOVIR
     Indication: HERPES VIRUS INFECTION
     Dosage: UNK
     Route: 048

REACTIONS (6)
  - Narcissistic personality disorder [Unknown]
  - Mental disorder [Unknown]
  - Off label use [Unknown]
  - Condition aggravated [Unknown]
  - Illness [Unknown]
  - Product use issue [Unknown]
